FAERS Safety Report 9646141 (Version 1)
Quarter: 2013Q4

REPORT INFORMATION
  Report Type: Spontaneous
  Country: US (occurrence: US)
  Receive Date: 20131025
  Receipt Date: 20131025
  Transmission Date: 20140711
  Serious: Yes (Life-Threatening, Hospitalization)
  Sender: FDA-Public Use
  Company Number: US-ACTAVIS-2013-18901

PATIENT
  Age: 26 Year
  Sex: Female

DRUGS (4)
  1. ACETAMINOPHEN (UNKNOWN) [Suspect]
     Indication: OVERDOSE
     Dosage: UNK
     Route: 065
  2. BUPROPION [Concomitant]
     Indication: DEPRESSION
     Dosage: UNK
     Route: 065
  3. ESCITALOPRAM [Concomitant]
     Indication: DEPRESSION
     Dosage: UNK
     Route: 065
  4. ARIPIPRAZOLE [Concomitant]
     Indication: DEPRESSION
     Dosage: UNK
     Route: 065

REACTIONS (2)
  - Acute hepatic failure [Recovering/Resolving]
  - Overdose [Unknown]
